FAERS Safety Report 10454203 (Version 4)
Quarter: 2015Q2

REPORT INFORMATION
  Report Type: Report from Study
  Country: US (occurrence: US)
  Receive Date: 20140915
  Receipt Date: 20150518
  Transmission Date: 20150821
  Serious: Yes (Hospitalization, Other)
  Sender: FDA-Public Use
  Company Number: US-SA-2014SA053813

PATIENT
  Age: 77 Year
  Sex: Female
  Weight: 72.54 kg

DRUGS (4)
  1. AUBAGIO [Suspect]
     Active Substance: TERIFLUNOMIDE
     Indication: MULTIPLE SCLEROSIS
     Route: 048
     Dates: start: 20140307
  2. PREDNISONE. [Concomitant]
     Active Substance: PREDNISONE
     Route: 048
  3. COPAXONE [Concomitant]
     Active Substance: GLATIRAMER ACETATE
     Dates: start: 200501, end: 201403
  4. AUBAGIO [Suspect]
     Active Substance: TERIFLUNOMIDE
     Indication: MULTIPLE SCLEROSIS
     Route: 048

REACTIONS (16)
  - Thrombosis [Recovering/Resolving]
  - Oedema peripheral [Unknown]
  - Limb discomfort [Recovering/Resolving]
  - Confusional state [Recovering/Resolving]
  - Joint swelling [Recovering/Resolving]
  - Aphasia [Recovering/Resolving]
  - Wheelchair user [Unknown]
  - Abnormal dreams [Recovering/Resolving]
  - Rash pruritic [Unknown]
  - Swelling [Recovering/Resolving]
  - Skin discolouration [Recovering/Resolving]
  - Irritability [Recovering/Resolving]
  - Diarrhoea [Unknown]
  - Cellulitis [Recovering/Resolving]
  - Pruritus [Recovering/Resolving]
  - Erythema [Unknown]

NARRATIVE: CASE EVENT DATE: 20141222
